FAERS Safety Report 8240465-0 (Version None)
Quarter: 2012Q1

REPORT INFORMATION
  Report Type: 
  Country: None (occurrence: None)
  Receive Date: 20120328
  Receipt Date: 20120322
  Transmission Date: 20120608
  Serious: Yes (Hospitalization)
  Sender: FDA-Public Use
  Company Number: DE-ROCHE-1020450

PATIENT
  Sex: Male
  Weight: 111 kg

DRUGS (1)
  1. VEMURAFENIB [Suspect]
     Indication: MALIGNANT MELANOMA
     Dosage: DATE OF LAST DOSE PRIOR TO THE EVENT: 01/DEC/2011
     Route: 048
     Dates: start: 20111124, end: 20111207

REACTIONS (1)
  - EPILEPSY [None]
